FAERS Safety Report 22275046 (Version 2)
Quarter: 2023Q2

REPORT INFORMATION
  Report Type: Report from Study
  Country: US (occurrence: US)
  Receive Date: 20230502
  Receipt Date: 20230522
  Transmission Date: 20230722
  Serious: Yes (Other)
  Sender: FDA-Public Use
  Company Number: US-002147023-NVSC2023US095168

PATIENT
  Sex: Male

DRUGS (3)
  1. LOSARTAN [Suspect]
     Active Substance: LOSARTAN
     Indication: Hypertension
     Dosage: UNK
     Route: 065
  2. ENTRESTO [Suspect]
     Active Substance: SACUBITRIL\VALSARTAN
     Indication: Product used for unknown indication
     Dosage: UNK
     Route: 065
  3. ELIQUIS [Concomitant]
     Active Substance: APIXABAN
     Indication: Product used for unknown indication
     Dosage: UNK
     Route: 065

REACTIONS (9)
  - Transient ischaemic attack [Unknown]
  - Throat clearing [Unknown]
  - Cough [Recovered/Resolved with Sequelae]
  - Decreased activity [Unknown]
  - Contraindicated product administered [Unknown]
  - Chest pain [Unknown]
  - Blood pressure increased [Unknown]
  - Fatigue [Unknown]
  - Drug ineffective [Unknown]
